FAERS Safety Report 9382729 (Version 2)
Quarter: 2013Q3

REPORT INFORMATION
  Report Type: Spontaneous
  Country: BR (occurrence: BR)
  Receive Date: 20130703
  Receipt Date: 20130930
  Transmission Date: 20140515
  Serious: Yes (Congenital Anomaly)
  Sender: FDA-Public Use
  Company Number: BR-009507513-1307BRA001391

PATIENT
  Sex: Male
  Weight: 3.15 kg

DRUGS (2)
  1. IMPLANON [Suspect]
     Dosage: UNK
     Route: 064
  2. FOLIC ACID [Concomitant]
     Dosage: UNK
     Route: 064
     Dates: start: 201206

REACTIONS (3)
  - Bronchitis [Not Recovered/Not Resolved]
  - Foetal exposure during pregnancy [Unknown]
  - Wheezing [Not Recovered/Not Resolved]
